FAERS Safety Report 8601203-2 (Version None)
Quarter: 2012Q3

REPORT INFORMATION
  Report Type: 
  Country: None (occurrence: None)
  Receive Date: 20120805
  Receipt Date: 20120725
  Transmission Date: 20120928
  Serious: Yes (Death)
  Sender: FDA-Public Use
  Company Number: 2012MA009137

PATIENT
  Age: 21 Year
  Sex: Male

DRUGS (4)
  1. AMITRIPTYLINE HYDROCHLORIDE [Suspect]
     Indication: PRODUCT USED FOR UNKNOWN INDICATION
     Dosage: PARN
     Route: 051
  2. DIAZEPAM [Suspect]
     Indication: PRODUCT USED FOR UNKNOWN INDICATION
     Dosage: PARN
     Route: 051
  3. KADIAN [Suspect]
     Indication: PRODUCT USED FOR UNKNOWN INDICATION
     Dosage: PARN
     Route: 051
  4. ALPRAZOLAM [Suspect]
     Indication: PRODUCT USED FOR UNKNOWN INDICATION
     Dosage: PARN
     Route: 051

REACTIONS (4)
  - WOUND [None]
  - HYPOTHERMIA [None]
  - NEEDLE TRACK MARKS [None]
  - TOXICITY TO VARIOUS AGENTS [None]
